FAERS Safety Report 10581485 (Version 1)
Quarter: 2014Q4

REPORT INFORMATION
  Report Type: Spontaneous
  Country: US (occurrence: US)
  Receive Date: 20141113
  Receipt Date: 20141113
  Transmission Date: 20150529
  Serious: Yes (Other)
  Sender: FDA-Public Use
  Company Number: US-UNITED THERAPEUTICS-UNT-2014-010694

PATIENT
  Sex: Male
  Weight: 84.81 kg

DRUGS (2)
  1. ADCIRCA [Concomitant]
     Active Substance: TADALAFIL
     Indication: PRODUCT USED FOR UNKNOWN INDICATION
  2. TYVASO [Suspect]
     Active Substance: TREPROSTINIL
     Indication: PULMONARY HYPERTENSION
     Dosage: 18-54 ?G, QID
     Dates: start: 20141024

REACTIONS (6)
  - Nausea [Unknown]
  - Oropharyngeal pain [Unknown]
  - Oral disorder [Unknown]
  - Cough [Unknown]
  - Depression [Unknown]
  - Fatigue [Unknown]

NARRATIVE: CASE EVENT DATE: 2014
